FAERS Safety Report 9395556 (Version 1)
Quarter: 2013Q3

REPORT INFORMATION
  Report Type: Report from Study
  Country: MX (occurrence: MX)
  Receive Date: 20130711
  Receipt Date: 20130711
  Transmission Date: 20140515
  Serious: Yes (Death)
  Sender: FDA-Public Use
  Company Number: MX-ASTELLAS-2013US007217

PATIENT
  Sex: Male

DRUGS (2)
  1. ERLOTINIB TABLET [Suspect]
     Indication: LUNG NEOPLASM MALIGNANT
     Dosage: 16 MG, UID/QD
     Route: 048
     Dates: start: 20120515
  2. AVASTIN /01555201/ [Suspect]
     Indication: LUNG NEOPLASM MALIGNANT
     Dosage: 400 MG 1 IN 21 D
     Route: 042

REACTIONS (2)
  - Incorrect dose administered [Unknown]
  - Death [Fatal]
